FAERS Safety Report 24902150 (Version 4)
Quarter: 2025Q1

REPORT INFORMATION
  Report Type: Report from Study
  Country: US (occurrence: US)
  Receive Date: 20250129
  Receipt Date: 20250328
  Transmission Date: 20250409
  Serious: Yes (Hospitalization)
  Sender: TAKEDA
  Company Number: US-TAKEDA-2024TUS106343

PATIENT
  Age: 36 Year
  Sex: Female

DRUGS (4)
  1. LANADELUMAB [Suspect]
     Active Substance: LANADELUMAB
     Indication: Immune system disorder
     Dosage: 300 MILLIGRAM, Q2WEEKS
     Dates: start: 202410
  2. LANADELUMAB [Suspect]
     Active Substance: LANADELUMAB
  3. LANADELUMAB [Suspect]
     Active Substance: LANADELUMAB
  4. ICATIBANT ACETATE [Concomitant]
     Active Substance: ICATIBANT ACETATE

REACTIONS (8)
  - Muscle spasms [Unknown]
  - Weight decreased [Unknown]
  - Tremor [Unknown]
  - Hereditary angioedema [Not Recovered/Not Resolved]
  - Administration site irritation [Recovered/Resolved]
  - Administration site erythema [Recovered/Resolved]
  - Limb injury [Unknown]
  - Weight increased [Unknown]

NARRATIVE: CASE EVENT DATE: 20250114
